FAERS Safety Report 12246864 (Version 1)
Quarter: 2016Q2

REPORT INFORMATION
  Report Type: Spontaneous
  Country: US (occurrence: US)
  Receive Date: 20160407
  Receipt Date: 20160407
  Transmission Date: 20160815
  Serious: Yes (Other)
  Sender: FDA-Public Use
  Company Number: US-BRISTOL-MYERS SQUIBB COMPANY-BMS-2016-025566

PATIENT
  Sex: Female

DRUGS (2)
  1. ORENCIA [Suspect]
     Active Substance: ABATACEPT
     Indication: RHEUMATOID ARTHRITIS
     Dosage: 1 DF, UNK
     Route: 065
     Dates: start: 2014
  2. ORENCIA [Suspect]
     Active Substance: ABATACEPT
     Indication: OSTEOARTHRITIS

REACTIONS (1)
  - Breast cancer [Unknown]
